FAERS Safety Report 5077647-5 (Version None)
Quarter: 2006Q3

REPORT INFORMATION
  Report Type: 
  Country: None (occurrence: None)
  Receive Date: 20060807
  Receipt Date: 20060720
  Transmission Date: 20061208
  Serious: Yes (Hospitalization)
  Sender: FDA-Public Use
  Company Number: US200607003541

PATIENT
  Sex: Male

DRUGS (6)
  1. HUMULIN U [Suspect]
     Indication: DIABETES MELLITUS
  2. HUMULIN R [Suspect]
     Indication: DIABETES MELLITUS
  3. HUMULIN N [Suspect]
     Indication: DIABETES MELLITUS
  4. ILETIN [Suspect]
     Indication: DIABETES MELLITUS
     Dates: end: 19640101
  5. ILETIN [Suspect]
     Indication: DIABETES MELLITUS
     Dates: start: 19640101
  6. ILETIN [Suspect]
     Indication: DIABETES MELLITUS

REACTIONS (8)
  - ANIMAL BITE [None]
  - DIABETES MELLITUS INADEQUATE CONTROL [None]
  - GASTRIC DISORDER [None]
  - INFLUENZA [None]
  - INJECTION SITE INDURATION [None]
  - INJECTION SITE NODULE [None]
  - INJECTION SITE REACTION [None]
  - WOUND INFECTION [None]
